FAERS Safety Report 11265446 (Version 2)
Quarter: 2015Q3

REPORT INFORMATION
  Report Type: Spontaneous
  Country: US (occurrence: US)
  Receive Date: 20150713
  Receipt Date: 20150713
  Transmission Date: 20151125
  Serious: Yes (Hospitalization, Other)
  Sender: FDA-Public Use
  Company Number: US-ACTAVIS-2015-14013

PATIENT
  Age: 8 Year
  Sex: Male

DRUGS (3)
  1. GUANFACINE (AELLC) [Interacting]
     Active Substance: GUANFACINE
     Indication: ATTENTION DEFICIT/HYPERACTIVITY DISORDER
     Dosage: 3 MG, IN THE MORNING PLUS AN EXTRA DOSE OF 3 MG 4 HOURS LATER
     Route: 065
  2. RISPERIDONE (WATSON LABORATORIES) [Suspect]
     Active Substance: RISPERIDONE
     Indication: HALLUCINATION, AUDITORY
     Dosage: 0.25 MG, DAILY (IN THE EVENING)
     Route: 065
  3. DEXMETHYLPHENIDATE HCL (WATSON LABORATORIES) [Interacting]
     Active Substance: DEXMETHYLPHENIDATE HYDROCHLORIDE
     Indication: ATTENTION DEFICIT/HYPERACTIVITY DISORDER
     Dosage: 20 MG LONG-ACTING IN THE MORNING AND 5 MG SHORT-ACTING, AT NOON
     Route: 065

REACTIONS (7)
  - Somnolence [Recovered/Resolved]
  - Fatigue [Recovered/Resolved]
  - Accidental overdose [Recovered/Resolved]
  - Sinus bradycardia [Recovered/Resolved]
  - Hyperhidrosis [Recovered/Resolved]
  - Hypotension [Recovered/Resolved]
  - Drug interaction [Unknown]
